FAERS Safety Report 9625602 (Version 1)
Quarter: 2013Q4

REPORT INFORMATION
  Report Type: Spontaneous
  Country: US (occurrence: None)
  Receive Date: 20131015
  Receipt Date: 20131015
  Transmission Date: 20140711
  Serious: No
  Sender: FDA-Public Use
  Company Number: None

PATIENT
  Age: 53 Year
  Sex: Male

DRUGS (10)
  1. VICTOZA [Suspect]
     Indication: HYPERGLYCAEMIA
     Route: 058
     Dates: start: 20130808, end: 20131011
  2. VICTOZA [Suspect]
     Indication: TYPE 2 DIABETES MELLITUS
     Route: 058
     Dates: start: 20130808, end: 20131011
  3. VICTOZA [Suspect]
     Indication: OBESITY
     Route: 058
     Dates: start: 20130808, end: 20131011
  4. ASPIRIN [Concomitant]
  5. ATORVASTATIN [Concomitant]
  6. GLYBURIDE [Concomitant]
  7. HYDROCHLOROTHIAZIDE [Concomitant]
  8. LISINOPRIL [Concomitant]
  9. METFORMIN [Concomitant]
  10. NIASPAN [Concomitant]

REACTIONS (2)
  - Amylase increased [None]
  - Lipase increased [None]
